FAERS Safety Report 16349682 (Version 2)
Quarter: 2019Q3

REPORT INFORMATION
  Report Type: Spontaneous
  Country: CA (occurrence: CA)
  Receive Date: 20190523
  Receipt Date: 20190702
  Transmission Date: 20191004
  Serious: Yes (Other)
  Sender: FDA-Public Use
  Company Number: CA-TEVA-2019-CA-1052825

PATIENT
  Age: 15 Year
  Sex: Female

DRUGS (7)
  1. MESNA. [Suspect]
     Active Substance: MESNA
     Indication: MEDULLOBLASTOMA
     Route: 065
  2. LOMUSTINE. [Suspect]
     Active Substance: LOMUSTINE
     Indication: MEDULLOBLASTOMA
     Route: 065
  3. VINCRISTINE [Suspect]
     Active Substance: VINCRISTINE
     Indication: MEDULLOBLASTOMA
     Dosage: ADMINISTERED WEEKLY
     Route: 065
  4. CISPLATIN. [Suspect]
     Active Substance: CISPLATIN
     Indication: MEDULLOBLASTOMA
     Route: 065
  5. CYCLOPHOSPHAMIDE. [Suspect]
     Active Substance: CYCLOPHOSPHAMIDE
     Indication: MEDULLOBLASTOMA
     Route: 065
  6. FILGRASTIM [Suspect]
     Active Substance: FILGRASTIM
     Indication: MEDULLOBLASTOMA
     Route: 065
  7. VINBLASTINE [Suspect]
     Active Substance: VINBLASTINE
     Indication: MEDULLOBLASTOMA
     Dosage: ON DAYS 1, 8, AND 15
     Route: 065

REACTIONS (4)
  - Ototoxicity [Recovered/Resolved]
  - Hepatotoxicity [Recovered/Resolved]
  - Peripheral motor neuropathy [Recovered/Resolved]
  - Peripheral sensory neuropathy [Recovered/Resolved]
